APPROVED DRUG PRODUCT: PEMETREXED DISODIUM
Active Ingredient: PEMETREXED DISODIUM
Strength: EQ 1GM BASE/40ML (EQ 25MG BASE/ML)
Dosage Form/Route: SOLUTION;INTRAVENOUS
Application: N214657 | Product #003
Applicant: SANDOZ INC
Approved: May 26, 2022 | RLD: Yes | RS: Yes | Type: RX